FAERS Safety Report 6524783-X (Version None)
Quarter: 2010Q1

REPORT INFORMATION
  Report Type: 
  Country: None (occurrence: None)
  Receive Date: 20100104
  Receipt Date: 20091118
  Transmission Date: 20100710
  Serious: Yes (Hospitalization)
  Sender: FDA-Public Use
  Company Number: TR-ELI_LILLY_AND_COMPANY-TR200909006004

PATIENT
  Sex: Female

DRUGS (6)
  1. PEMETREXED [Suspect]
     Indication: NON-SMALL CELL LUNG CANCER
     Dosage: 500 MG/M2, ON D1 EVERY 21 DAYS
     Route: 042
     Dates: start: 20090721
  2. CISPLATIN [Suspect]
     Indication: NON-SMALL CELL LUNG CANCER
     Dosage: 75 MG/M2, ON D1 EVERY 21 DAYS
     Route: 042
     Dates: start: 20090721
  3. FOLIC ACID [Concomitant]
     Indication: PROPHYLAXIS
     Dates: start: 20090710
  4. VIT B12 [Concomitant]
     Indication: PROPHYLAXIS
     Dates: start: 20090710
  5. DEXAMETHASONE [Concomitant]
     Indication: PROPHYLAXIS
     Dates: start: 20090710
  6. LANSOPRAZOLE [Concomitant]
     Indication: GASTRITIS
     Dosage: 30 MG, DAILY (1/D)

REACTIONS (2)
  - HYPERTENSIVE EMERGENCY [None]
  - SINUS TACHYCARDIA [None]
